FAERS Safety Report 18632685 (Version 1)
Quarter: 2020Q4

REPORT INFORMATION
  Report Type: Spontaneous
  Country: US (occurrence: US)
  Receive Date: 20201217
  Receipt Date: 20201217
  Transmission Date: 20210114
  Serious: Yes (Hospitalization)
  Sender: FDA-Public Use
  Company Number: None

PATIENT
  Sex: Female
  Weight: 112 kg

DRUGS (1)
  1. ASPIRIN. [Suspect]
     Active Substance: ASPIRIN
     Dates: end: 20201117

REACTIONS (13)
  - Condition aggravated [None]
  - Chest pain [None]
  - Diarrhoea [None]
  - Oxygen saturation decreased [None]
  - Exposure to SARS-CoV-2 [None]
  - Lung opacity [None]
  - Headache [None]
  - Pyrexia [None]
  - Dyspnoea [None]
  - SARS-CoV-2 test positive [None]
  - COVID-19 pneumonia [None]
  - Interstitial lung disease [None]
  - Inflammatory marker increased [None]

NARRATIVE: CASE EVENT DATE: 20201112
